FAERS Safety Report 25423448 (Version 1)
Quarter: 2025Q2

REPORT INFORMATION
  Report Type: Spontaneous
  Country: US (occurrence: None)
  Receive Date: 20250610
  Receipt Date: 20250610
  Transmission Date: 20250717
  Serious: Yes (Other)
  Sender: FDA-CTU
  Company Number: None

PATIENT
  Age: 59 Year
  Sex: Male
  Weight: 119.7 kg

DRUGS (13)
  1. ZEPBOUND [Suspect]
     Active Substance: TIRZEPATIDE
     Indication: Weight decreased
     Route: 058
     Dates: start: 20250520, end: 20250603
  2. TOPIRAMATE [Concomitant]
     Active Substance: TOPIRAMATE
  3. LOSARTAN [Concomitant]
     Active Substance: LOSARTAN
  4. CLOPIDOGREL [Concomitant]
     Active Substance: CLOPIDOGREL BISULFATE
  5. PANTOPRAZOLE SODIUM [Concomitant]
     Active Substance: PANTOPRAZOLE SODIUM
  6. Potassium 10 MEQ [Concomitant]
  7. ROSUVASTATIN [Concomitant]
     Active Substance: ROSUVASTATIN
  8. Ezetimbe 10 mg [Concomitant]
  9. MAGNESIUM OXIDE [Concomitant]
     Active Substance: MAGNESIUM OXIDE
  10. Vitamin D3 5000 IU [Concomitant]
  11. VITAMINS [Concomitant]
     Active Substance: VITAMINS
  12. Vitamin C 5000mg [Concomitant]
  13. Vitamin B-12 5000 mcg [Concomitant]

REACTIONS (4)
  - Rash [None]
  - Pruritus [None]
  - Pruritus [None]
  - Rash [None]

NARRATIVE: CASE EVENT DATE: 20250603
